FAERS Safety Report 24859040 (Version 1)
Quarter: 2025Q1

REPORT INFORMATION
  Report Type: Report from Study
  Country: BR (occurrence: BR)
  Receive Date: 20250118
  Receipt Date: 20250118
  Transmission Date: 20250409
  Serious: Yes (Other)
  Sender: ABBVIE
  Company Number: BR-ABBVIE-6089739

PATIENT
  Sex: Female

DRUGS (2)
  1. HUMIRA [Suspect]
     Active Substance: ADALIMUMAB
     Indication: Rheumatoid arthritis
     Route: 058
     Dates: start: 20180921
  2. HUMIRA [Suspect]
     Active Substance: ADALIMUMAB
     Indication: Enthesopathy

REACTIONS (5)
  - Systemic lupus erythematosus [Unknown]
  - Drug ineffective [Unknown]
  - Pain [Unknown]
  - Psoriasis [Unknown]
  - Pulmonary fibrosis [Unknown]
